FAERS Safety Report 5346798-X (Version None)
Quarter: 2007Q2

REPORT INFORMATION
  Report Type: 
  Country: None (occurrence: None)
  Receive Date: 20070604
  Receipt Date: 20070518
  Transmission Date: 20071010
  Serious: Yes (Hospitalization)
  Sender: FDA-Public Use
  Company Number: 2007RR-07708

PATIENT
  Age: 68 Year
  Sex: Male

DRUGS (2)
  1. SIMVASTATIN [Suspect]
     Dosage: 20 MG, QD
  2. AMLODIPINE MALEATE (AMLODIPINE) [Concomitant]

REACTIONS (17)
  - ARTHRALGIA [None]
  - CARDIAC MURMUR [None]
  - CATHETER RELATED INFECTION [None]
  - CONFUSIONAL STATE [None]
  - CONTUSION [None]
  - HEADACHE [None]
  - JAUNDICE [None]
  - JOINT EFFUSION [None]
  - JOINT SWELLING [None]
  - MOUTH HAEMORRHAGE [None]
  - NAUSEA [None]
  - PETECHIAE [None]
  - PLATELET DESTRUCTION INCREASED [None]
  - PYREXIA [None]
  - SEPSIS [None]
  - STAPHYLOCOCCAL INFECTION [None]
  - THROMBOTIC THROMBOCYTOPENIC PURPURA [None]
